FAERS Safety Report 5970833-9 (Version None)
Quarter: 2008Q4

REPORT INFORMATION
  Report Type: 
  Country: None (occurrence: None)
  Receive Date: 20081127
  Receipt Date: 20081117
  Transmission Date: 20090506
  Serious: Yes (Hospitalization)
  Sender: FDA-Public Use
  Company Number: GB-RANBAXY-2008RR-19469

PATIENT
  Age: 82 Year
  Sex: Female

DRUGS (4)
  1. PARACETAMOL [Suspect]
     Indication: ANALGESIA
     Dosage: 1 G, QID
  2. FLOXACILLIN SODIUM [Concomitant]
     Indication: INFECTION
     Route: 042
  3. LEVOFLOXACIN [Concomitant]
     Indication: PSEUDOMONAS INFECTION
  4. RIFAMPICIN [Concomitant]
     Indication: STAPHYLOCOCCAL INFECTION

REACTIONS (1)
  - METABOLIC ACIDOSIS [None]
